FAERS Safety Report 16111883 (Version 1)
Quarter: 2019Q1

REPORT INFORMATION
  Report Type: Spontaneous
  Country: US (occurrence: US)
  Receive Date: 20190325
  Receipt Date: 20190325
  Transmission Date: 20190418
  Serious: No
  Sender: FDA-Public Use
  Company Number: US-SA-2019SA080347

PATIENT
  Age: 69 Year
  Sex: Male
  Weight: 124.72 kg

DRUGS (13)
  1. DUPIXENT [Suspect]
     Active Substance: DUPILUMAB
     Indication: DERMATITIS ATOPIC
  2. IRBESARTAN. [Concomitant]
     Active Substance: IRBESARTAN
  3. AMLODIPINE BESYLATE. [Concomitant]
     Active Substance: AMLODIPINE BESYLATE
  4. ATORVASTATIN [Concomitant]
     Active Substance: ATORVASTATIN
  5. ALFUZOSIN HCL [Concomitant]
     Active Substance: ALFUZOSIN HYDROCHLORIDE
  6. ANUCORT-HC [Concomitant]
     Active Substance: HYDROCORTISONE ACETATE
  7. VITAMIN C [Concomitant]
     Active Substance: ASCORBIC ACID
  8. DUPIXENT [Suspect]
     Active Substance: DUPILUMAB
     Indication: ASTHMA
     Dosage: 2 ML, QOW
     Route: 058
  9. ADVAIR HFA [Concomitant]
     Active Substance: FLUTICASONE PROPIONATE\SALMETEROL XINAFOATE
  10. HYDROCORTISONE/PRAMOXINE [HYDROCORTISONE ACETATE;PRAMOCAINE HYDROCHLOR [Concomitant]
  11. CALCIUM [Concomitant]
     Active Substance: CALCIUM
  12. EPINEPHRINE. [Concomitant]
     Active Substance: EPINEPHRINE
  13. DOXYCYCLINE HYCLATE. [Concomitant]
     Active Substance: DOXYCYCLINE HYCLATE

REACTIONS (2)
  - Upper respiratory tract infection [Recovered/Resolved]
  - Eye discharge [Recovered/Resolved]

NARRATIVE: CASE EVENT DATE: 201902
